FAERS Safety Report 9857969 (Version 2)
Quarter: 2014Q1

REPORT INFORMATION
  Report Type: Spontaneous
  Country: US (occurrence: US)
  Receive Date: 20140131
  Receipt Date: 20140211
  Transmission Date: 20141002
  Serious: No
  Sender: FDA-Public Use
  Company Number: US-PFIZER INC-2014027149

PATIENT
  Age: 90 Year
  Sex: Female
  Weight: 56.69 kg

DRUGS (4)
  1. LYRICA [Suspect]
     Indication: SPINAL COLUMN STENOSIS
     Dosage: 100 MG, 3X/DAY
     Dates: start: 2013
  2. LYRICA [Suspect]
     Indication: CYST
  3. JANUVIA [Concomitant]
     Indication: TYPE 2 DIABETES MELLITUS
     Dosage: UNK
  4. METFORMIN [Concomitant]
     Indication: TYPE 2 DIABETES MELLITUS
     Dosage: UNK

REACTIONS (12)
  - Drug ineffective [Unknown]
  - Constipation [Recovered/Resolved]
  - Dry throat [Unknown]
  - Vision blurred [Unknown]
  - Visual acuity reduced [Unknown]
  - Rhinorrhoea [Unknown]
  - Fatigue [Unknown]
  - Insomnia [Unknown]
  - Limb discomfort [Unknown]
  - Rhinorrhoea [Unknown]
  - Cough [Unknown]
  - Insomnia [Unknown]
